FAERS Safety Report 5167472-9 (Version None)
Quarter: 2006Q4

REPORT INFORMATION
  Report Type: 
  Country: None (occurrence: None)
  Receive Date: 20061130
  Receipt Date: 20061117
  Transmission Date: 20070319
  Serious: Yes (Other)
  Sender: FDA-Public Use
  Company Number: 15188

PATIENT
  Age: 28 Week
  Sex: Male
  Weight: 0.7 kg

DRUGS (1)
  1. DOPAMINE HCL [Suspect]
     Indication: HYPOTENSION
     Dosage: 8 MCG/KG PER MINUTE UNK

REACTIONS (5)
  - ANTI-THYROID ANTIBODY POSITIVE [None]
  - CONGENITAL HYPOTHYROIDISM [None]
  - FEEDING DISORDER NEONATAL [None]
  - JAUNDICE NEONATAL [None]
  - POOR WEIGHT GAIN NEONATAL [None]
